FAERS Safety Report 25184996 (Version 1)
Quarter: 2025Q2

REPORT INFORMATION
  Report Type: Spontaneous
  Country: DE (occurrence: DE)
  Receive Date: 20250410
  Receipt Date: 20250410
  Transmission Date: 20250717
  Serious: Yes (Death)
  Sender: NORDIC PHARMA
  Company Number: DE-MEDAC-2025-AER-01415

PATIENT
  Age: 78 Year
  Sex: Female

DRUGS (1)
  1. METHOTREXATE [Suspect]
     Active Substance: METHOTREXATE

REACTIONS (4)
  - Death [Fatal]
  - Product prescribing error [Fatal]
  - Inappropriate schedule of product administration [Fatal]
  - Accidental overdose [Fatal]
